FAERS Safety Report 14184084 (Version 1)
Quarter: 2017Q4

REPORT INFORMATION
  Report Type: Report from Study
  Country: US (occurrence: US)
  Receive Date: 20171113
  Receipt Date: 20171113
  Transmission Date: 20180321
  Serious: Yes (Hospitalization)
  Sender: FDA-Public Use
  Company Number: US-UCBSA-2017027013

PATIENT
  Age: 62 Year
  Sex: Male
  Weight: 87 kg

DRUGS (22)
  1. ATORVASTATIN CALCIUM. [Concomitant]
     Active Substance: ATORVASTATIN CALCIUM
     Indication: PRODUCT USED FOR UNKNOWN INDICATION
     Dosage: UNK
  2. LEVOTHYROXINE SODIUM. [Concomitant]
     Active Substance: LEVOTHYROXINE SODIUM
     Indication: PRODUCT USED FOR UNKNOWN INDICATION
     Dosage: UNK
  3. BRIVARACETAM [Suspect]
     Active Substance: BRIVARACETAM
     Dosage: 50 MG, 2X/DAY (BID)
     Route: 048
     Dates: start: 20170628, end: 2017
  4. DILANTIN [Suspect]
     Active Substance: PHENYTOIN
     Indication: EPILEPSY
     Dosage: UNK
  5. ALFUZOSIN HYDROCHLORIDE. [Concomitant]
     Active Substance: ALFUZOSIN HYDROCHLORIDE
     Indication: PRODUCT USED FOR UNKNOWN INDICATION
     Dosage: 1 DF, ONCE DAILY (QD)
     Route: 048
  6. DILANTIN [Suspect]
     Active Substance: PHENYTOIN
     Dosage: UNK
     Dates: start: 201707, end: 2017
  7. DILANTIN [Suspect]
     Active Substance: PHENYTOIN
     Dosage: 400 MG, UNK
     Dates: start: 201709
  8. CARBAMAZEPINE. [Suspect]
     Active Substance: CARBAMAZEPINE
     Indication: EPILEPSY
     Dosage: 200 MG, 2X/DAY (BID)
     Route: 048
  9. AMLODIPINE BESYLATE. [Concomitant]
     Active Substance: AMLODIPINE BESYLATE
     Indication: PRODUCT USED FOR UNKNOWN INDICATION
     Dosage: 5 MG, ONCE DAILY (QD)
     Route: 048
  10. PREDNISONE. [Concomitant]
     Active Substance: PREDNISONE
     Indication: PRODUCT USED FOR UNKNOWN INDICATION
     Dosage: UNK
  11. VALACYCLOVIR HYDROCHLORIDE. [Concomitant]
     Active Substance: VALACYCLOVIR HYDROCHLORIDE
     Indication: PRODUCT USED FOR UNKNOWN INDICATION
     Dosage: 500 MG, ONCE DAILY (QD)
     Route: 048
  12. KEPPRA [Suspect]
     Active Substance: LEVETIRACETAM
     Dosage: INCREASED DOSE
     Dates: start: 201704, end: 2017
  13. ESLICARBAZEPINE ACETATE [Concomitant]
     Active Substance: ESLICARBAZEPINE ACETATE
     Indication: EPILEPSY
     Dosage: UNK
     Dates: start: 2017
  14. GABAPENTIN. [Concomitant]
     Active Substance: GABAPENTIN
     Dosage: 800 MG, 2X/DAY (BID)
     Route: 048
  15. BRIVARACETAM [Suspect]
     Active Substance: BRIVARACETAM
     Indication: EPILEPSY
     Dosage: 100 MG, 2X/DAY (BID)
     Route: 048
     Dates: start: 201705, end: 2017
  16. BRIVARACETAM [Suspect]
     Active Substance: BRIVARACETAM
     Dosage: 100 MG, 2X/DAY (BID)
     Route: 048
     Dates: start: 2017
  17. KEPPRA [Suspect]
     Active Substance: LEVETIRACETAM
     Indication: EPILEPSY
     Dosage: UNK
     Dates: start: 201411
  18. KEPPRA [Suspect]
     Active Substance: LEVETIRACETAM
     Dosage: TAPERED DOSE
     Dates: start: 201705, end: 201706
  19. CARBAMAZEPINE. [Suspect]
     Active Substance: CARBAMAZEPINE
     Dosage: 400 MG, 2X/DAY (BID)
  20. LORAZEPAM. [Concomitant]
     Active Substance: LORAZEPAM
     Indication: ANXIETY DISORDER
     Dosage: 1 DF, 4X/DAY (QID) AS NEEDED
     Route: 048
  21. CIPROFLOXACIN. [Concomitant]
     Active Substance: CIPROFLOXACIN
     Indication: PRODUCT USED FOR UNKNOWN INDICATION
     Dosage: UNK
  22. GABAPENTIN. [Concomitant]
     Active Substance: GABAPENTIN
     Indication: NEUROPATHY PERIPHERAL
     Dosage: 800 MG, 3X/DAY (TID)
     Route: 048

REACTIONS (5)
  - Gastrointestinal disorder [Unknown]
  - Meniscus injury [Not Recovered/Not Resolved]
  - Toxicity to various agents [Not Recovered/Not Resolved]
  - Seizure [Not Recovered/Not Resolved]
  - Drug prescribing error [Unknown]

NARRATIVE: CASE EVENT DATE: 20170424
